FAERS Safety Report 17116220 (Version 1)
Quarter: 2019Q4

REPORT INFORMATION
  Report Type: Spontaneous
  Country: US (occurrence: US)
  Receive Date: 20191113
  Receipt Date: 20191113
  Transmission Date: 20200122
  Serious: No
  Sender: FDA-Public Use
  Company Number: None

PATIENT

DRUGS (3)
  1. OXCARBAZEPINE. [Suspect]
     Active Substance: OXCARBAZEPINE
     Route: 048
  2. RISPERIDONE 0.25MG [Suspect]
     Active Substance: RISPERIDONE
  3. SERTRALINE [Suspect]
     Active Substance: SERTRALINE HYDROCHLORIDE

REACTIONS (5)
  - Wrong product administered [None]
  - Wrong schedule [None]
  - Wrong patient received product [None]
  - Wrong technique in product usage process [None]
  - Self-induced vomiting [None]
